FAERS Safety Report 7206185-6 (Version None)
Quarter: 2010Q4

REPORT INFORMATION
  Report Type: 
  Country: None (occurrence: None)
  Receive Date: 20101217
  Receipt Date: 20101203
  Transmission Date: 20110411
  Serious: Yes (Hospitalization)
  Sender: FDA-Public Use
  Company Number: 018176

PATIENT
  Sex: Female

DRUGS (10)
  1. CERTOLIZUMAB PEGOL (CERTOLIZUMAB PEGOL) [Suspect]
     Indication: RHEUMATOID ARTHRITIS
     Dosage: (200 MG 1X/2 WEEKS SUBCUTANEOUS), (200 MG 1X/2 WEEKS SUBCUTANEOUS)
     Route: 058
     Dates: start: 20100223, end: 20100812
  2. CERTOLIZUMAB PEGOL (CERTOLIZUMAB PEGOL) [Suspect]
     Indication: RHEUMATOID ARTHRITIS
     Dosage: (200 MG 1X/2 WEEKS SUBCUTANEOUS), (200 MG 1X/2 WEEKS SUBCUTANEOUS)
     Route: 058
     Dates: start: 20100921
  3. RHEUMATREX [Suspect]
     Indication: RHEUMATOID ARTHRITIS
     Dosage: (8 MG 1X/WEEK ORAL), (8 MG 1X/WEEK ORAL)
     Route: 048
     Dates: start: 20071001, end: 20100820
  4. RHEUMATREX [Suspect]
     Indication: RHEUMATOID ARTHRITIS
     Dosage: (8 MG 1X/WEEK ORAL), (8 MG 1X/WEEK ORAL)
     Route: 048
     Dates: start: 20100922
  5. FOLIC ACID [Concomitant]
  6. REBAMAPIDE [Concomitant]
  7. TOCOPHEROL CONCENTRATE CAP [Concomitant]
  8. CELECOXIB [Concomitant]
  9. AMLODIPINE BESYLATE [Concomitant]
  10. IRBESARTAN [Concomitant]

REACTIONS (5)
  - IMMUNE SYSTEM DISORDER [None]
  - LARYNGEAL MASS [None]
  - NASOPHARYNGITIS [None]
  - PYOGENIC GRANULOMA [None]
  - SINUSITIS [None]
